FAERS Safety Report 8717054 (Version 2)
Quarter: 2012Q4

REPORT INFORMATION
  Report Type: 
  Country: US (occurrence: US)
  Receive Date: 20120810
  Receipt Date: 20121210
  Transmission Date: 20130627
  Serious: Yes (Life-Threatening, Hospitalization, Other)
  Sender: FDA-Public Use
  Company Number: US-BAYER-2012-078677

PATIENT
  Age: 43 Year
  Sex: Female
  Weight: 60 kg

DRUGS (17)
  1. OCELLA [Suspect]
     Dosage: UNK
     Dates: start: 20090925, end: 20091112
  2. YAZ [Suspect]
     Dosage: UNK
     Dates: start: 20090925, end: 20091112
  3. YASMIN [Suspect]
     Dosage: UNK
     Dates: start: 20090925, end: 20091112
  4. PRILOSEC [Concomitant]
     Dosage: 20 mg, UNK
  5. DIOVAN HCT [Concomitant]
     Dosage: 160/12.5 mg
  6. AMBIEN [Concomitant]
     Dosage: 10 mg, HS
  7. CITRUCEL [Concomitant]
     Dosage: 1000 mg, UNK
  8. PROMETHAZINE [Concomitant]
     Dosage: 25 mg, UNK
     Dates: start: 20091111
  9. ALPRAZOLAM [Concomitant]
     Dosage: 0.5 mg, UNK
  10. OXYCODONE W/PARACETAMOL [Concomitant]
     Dosage: 5-325
     Dates: start: 20091111
  11. ACETAMINOPHEN W/PROPOXYPHENE [Concomitant]
     Dosage: 100-650
     Dates: start: 20091111
  12. POTASSIUM CHLORIDE [Concomitant]
     Dosage: 10 mEq, UNK
     Dates: start: 20091026
  13. ZOLPIDEM TARTRATE [Concomitant]
     Dosage: 10 mg, UNK
     Dates: start: 20091024
  14. AZITHROMYCIN [Concomitant]
     Dosage: 250 mg, UNK
     Dates: start: 20091012
  15. TUSSIONEX PENNKINETIC [Concomitant]
     Dosage: UNK
     Dates: start: 20091012
  16. IPRATROPIUM [Concomitant]
     Dosage: 0.06 UNK, UNK
     Dates: start: 20090926
  17. METRONIDAZOLE [Concomitant]
     Dosage: 500 mg, UNK
     Dates: start: 20090923

REACTIONS (9)
  - Pulmonary embolism [None]
  - Deep vein thrombosis [None]
  - Injury [None]
  - Cholelithiasis [None]
  - Pain [None]
  - Emotional distress [None]
  - General physical health deterioration [None]
  - Anxiety [None]
  - Pain [None]
